FAERS Safety Report 4449658-1 (Version None)
Quarter: 2004Q3

REPORT INFORMATION
  Report Type: 
  Country: None (occurrence: None)
  Receive Date: 20040913
  Receipt Date: 20040913
  Transmission Date: 20050211
  Serious: No
  Sender: FDA-Public Use
  Company Number: None

PATIENT
  Sex: Female
  Weight: 72.5755 kg

DRUGS (3)
  1. ZOMETA [Suspect]
     Indication: BREAST CANCER STAGE IV
     Dosage: MONTHLY   INTRAVENOUS
     Route: 042
     Dates: start: 19981031, end: 20011031
  2. ZOMETA [Suspect]
     Indication: METASTASES TO BONE
     Dosage: MONTHLY   INTRAVENOUS
     Route: 042
     Dates: start: 19981031, end: 20011031
  3. AREDIA [Suspect]
     Dosage: MONTHLY  INTRAVENOUS
     Route: 042
     Dates: start: 20011130, end: 20040804

REACTIONS (6)
  - GINGIVAL DISORDER [None]
  - IMPAIRED HEALING [None]
  - INFECTION [None]
  - OSTEONECROSIS [None]
  - TOOTH EXTRACTION [None]
  - TOOTHACHE [None]
